FAERS Safety Report 12709084 (Version 1)
Quarter: 2016Q3

REPORT INFORMATION
  Report Type: Spontaneous
  Country: US (occurrence: US)
  Receive Date: 20160901
  Receipt Date: 20160901
  Transmission Date: 20161109
  Serious: No
  Sender: FDA-Public Use
  Company Number: US-JAZZ-2016-US-008360

PATIENT
  Sex: Female

DRUGS (23)
  1. XANAX [Concomitant]
     Active Substance: ALPRAZOLAM
  2. LEXAPRO [Concomitant]
     Active Substance: ESCITALOPRAM OXALATE
  3. VITAMIN B12 [Concomitant]
     Active Substance: CYANOCOBALAMIN
  4. XYREM [Suspect]
     Active Substance: SODIUM OXYBATE
     Dosage: 4.5 G, BID
     Route: 048
     Dates: start: 2011
  5. YASMIN [Concomitant]
     Active Substance: DROSPIRENONE\ETHINYL ESTRADIOL
  6. ASTELIN [Concomitant]
     Active Substance: AZELASTINE HYDROCHLORIDE
  7. ZYRTEC [Concomitant]
     Active Substance: CETIRIZINE HYDROCHLORIDE
  8. XYREM [Suspect]
     Active Substance: SODIUM OXYBATE
     Indication: NARCOLEPSY
     Dosage: 2.25 G, BID
     Route: 048
     Dates: start: 201010, end: 201011
  9. LEVOCETIRIZINE [Concomitant]
     Active Substance: LEVOCETIRIZINE
  10. LEVOTHYROXINE. [Concomitant]
     Active Substance: LEVOTHYROXINE
  11. TOPAMAX [Concomitant]
     Active Substance: TOPIRAMATE
  12. CELEXA [Concomitant]
     Active Substance: CITALOPRAM HYDROBROMIDE
  13. CLARITIN [Concomitant]
     Active Substance: LORATADINE
  14. VERAMYST [Concomitant]
     Active Substance: FLUTICASONE FUROATE
  15. LAMOTRIGINE. [Concomitant]
     Active Substance: LAMOTRIGINE
  16. ROBAXIN [Concomitant]
     Active Substance: METHOCARBAMOL
  17. XYREM [Suspect]
     Active Substance: SODIUM OXYBATE
     Dosage: DOSE ADJUSTMENTS
     Route: 048
     Dates: start: 2010, end: 2010
  18. VITAMIN D [Concomitant]
     Active Substance: CHOLECALCIFEROL
  19. MONTELUKAST SODIUM. [Concomitant]
     Active Substance: MONTELUKAST SODIUM
  20. VITAMIN D3 [Concomitant]
     Active Substance: CHOLECALCIFEROL
  21. FLONASE [Concomitant]
     Active Substance: FLUTICASONE PROPIONATE
  22. PROVIGIL [Concomitant]
     Active Substance: MODAFINIL
  23. WELLBUTRIN SR [Concomitant]
     Active Substance: BUPROPION HYDROCHLORIDE

REACTIONS (1)
  - Weight decreased [Unknown]
